FAERS Safety Report 19972112 (Version 1)
Quarter: 2021Q4

REPORT INFORMATION
  Report Type: Spontaneous
  Country: US (occurrence: US)
  Receive Date: 20211020
  Receipt Date: 20211020
  Transmission Date: 20220303
  Serious: Yes (Hospitalization, Other)
  Sender: FDA-Public Use
  Company Number: US-MLMSERVICE-20211005-3147333-1

PATIENT
  Age: 42 Year
  Sex: Female

DRUGS (4)
  1. CARBOPLATIN [Interacting]
     Active Substance: CARBOPLATIN
     Indication: Anal squamous cell carcinoma
  2. PACLITAXEL [Interacting]
     Active Substance: PACLITAXEL
     Indication: Breast cancer
  3. NIVOLUMAB [Interacting]
     Active Substance: NIVOLUMAB
     Indication: Breast cancer
  4. PROCHLORPERAZINE [Concomitant]
     Active Substance: PROCHLORPERAZINE

REACTIONS (3)
  - Parkinsonism [Recovering/Resolving]
  - Drug interaction [Unknown]
  - Off label use [Unknown]
